FAERS Safety Report 21606109 (Version 1)
Quarter: 2022Q4

REPORT INFORMATION
  Report Type: Spontaneous
  Country: MA (occurrence: MA)
  Receive Date: 20221117
  Receipt Date: 20221117
  Transmission Date: 20230113
  Serious: Yes (Other)
  Sender: FDA-Public Use
  Company Number: MA-AMGEN-MARSP2022194558

PATIENT

DRUGS (2)
  1. VECTIBIX [Suspect]
     Active Substance: PANITUMUMAB
     Indication: Product used for unknown indication
     Dosage: UNK
     Route: 065
  2. TRASTUZUMAB [Suspect]
     Active Substance: TRASTUZUMAB
     Indication: Product used for unknown indication
     Dosage: UNK
     Route: 065

REACTIONS (17)
  - COVID-19 [Unknown]
  - Breakthrough COVID-19 [Unknown]
  - Lymphadenopathy [Unknown]
  - Myalgia [Unknown]
  - Arthralgia [Unknown]
  - Swelling [Unknown]
  - Chest pain [Unknown]
  - Pain [Unknown]
  - Headache [Unknown]
  - Pruritus [Unknown]
  - Erythema [Unknown]
  - Vomiting [Unknown]
  - Nausea [Unknown]
  - Diarrhoea [Unknown]
  - Pyrexia [Unknown]
  - Chills [Unknown]
  - Fatigue [Unknown]
